FAERS Safety Report 11758271 (Version 2)
Quarter: 2016Q1

REPORT INFORMATION
  Report Type: Spontaneous
  Country: JP (occurrence: JP)
  Receive Date: 20151120
  Receipt Date: 20160129
  Transmission Date: 20160525
  Serious: Yes (Hospitalization)
  Sender: FDA-Public Use
  Company Number: JP-ASTRAZENECA-2015SE82203

PATIENT
  Age: 75 Year
  Sex: Male
  Weight: 48 kg

DRUGS (3)
  1. DOMPERIDONE [Concomitant]
     Active Substance: DOMPERIDONE
     Dosage: DOSE UNKNOWN
     Route: 065
     Dates: start: 201507
  2. IRESSA [Suspect]
     Active Substance: GEFITINIB
     Indication: LUNG NEOPLASM MALIGNANT
     Route: 048
     Dates: start: 20120702, end: 20150820
  3. PARIET [Concomitant]
     Active Substance: RABEPRAZOLE SODIUM
     Dosage: DOSE UNKNOWN
     Route: 065
     Dates: start: 201507

REACTIONS (3)
  - Peritonitis [Unknown]
  - Gastric perforation [Recovered/Resolved]
  - Peptic ulcer [Unknown]

NARRATIVE: CASE EVENT DATE: 20150801
